FAERS Safety Report 12874627 (Version 1)
Quarter: 2016Q4

REPORT INFORMATION
  Report Type: Spontaneous
  Country: US (occurrence: US)
  Receive Date: 20161021
  Receipt Date: 20161021
  Transmission Date: 20170207
  Serious: No
  Sender: FDA-Public Use
  Company Number: US-TEIKOKU PHARMA USA-TPU2016-00690

PATIENT
  Sex: Female
  Weight: 72.64 kg

DRUGS (5)
  1. VICODIN [Concomitant]
     Active Substance: ACETAMINOPHEN\HYDROCODONE BITARTRATE
     Indication: PAIN
     Dates: start: 2009
  2. PLAQUENIL [Concomitant]
     Active Substance: HYDROXYCHLOROQUINE SULFATE
     Indication: SYSTEMIC LUPUS ERYTHEMATOSUS
     Dates: start: 201511
  3. CELEBREX [Concomitant]
     Active Substance: CELECOXIB
     Dosage: INFLAMMATION
     Dates: start: 2000
  4. GABAPENTIN. [Concomitant]
     Active Substance: GABAPENTIN
     Indication: NEUROPATHY PERIPHERAL
     Dates: start: 2009
  5. LIDOCAINE PATCH [Suspect]
     Active Substance: LIDOCAINE
     Indication: CERVICAL SPINAL STENOSIS
     Route: 061
     Dates: start: 20160925

REACTIONS (1)
  - Incorrect drug administration duration [Unknown]
